FAERS Safety Report 20765462 (Version 1)
Quarter: 2022Q2

REPORT INFORMATION
  Report Type: Spontaneous
  Country: US (occurrence: US)
  Receive Date: 20220428
  Receipt Date: 20220428
  Transmission Date: 20220720
  Serious: No
  Sender: FDA-Public Use
  Company Number: US-SA-SAC20220426001691

PATIENT
  Age: 47 Year
  Sex: Male

DRUGS (3)
  1. DUPIXENT [Suspect]
     Active Substance: DUPILUMAB
     Indication: Nasal polyps
     Dosage: 300 MG, QOW
     Route: 058
     Dates: start: 2020
  2. ROPINIROLE [Concomitant]
     Active Substance: ROPINIROLE
  3. HERBALS [Concomitant]
     Active Substance: HERBALS
     Dosage: UNK

REACTIONS (10)
  - Condition aggravated [Unknown]
  - Neuralgia [Not Recovered/Not Resolved]
  - Weight increased [Unknown]
  - Ageusia [Unknown]
  - Anosmia [Unknown]
  - COVID-19 [Unknown]
  - Condition aggravated [Unknown]
  - Eye pruritus [Unknown]
  - Rash [Not Recovered/Not Resolved]
  - Product use in unapproved indication [Unknown]
